FAERS Safety Report 16717139 (Version 1)
Quarter: 2019Q3

REPORT INFORMATION
  Report Type: Report from Study
  Country: US (occurrence: US)
  Receive Date: 20190819
  Receipt Date: 20190819
  Transmission Date: 20191005
  Serious: Yes (Other)
  Sender: FDA-Public Use
  Company Number: US-SHIRE-US201926193

PATIENT
  Sex: Female

DRUGS (3)
  1. CUVITRU [Suspect]
     Active Substance: HUMAN IMMUNOGLOBULIN G
     Indication: PRIMARY IMMUNODEFICIENCY SYNDROME
     Dosage: 38 GRAM, 2X A MONTH
     Route: 065
  2. METFORMIN [Concomitant]
     Active Substance: METFORMIN HYDROCHLORIDE
     Indication: PRODUCT USED FOR UNKNOWN INDICATION
     Route: 065
  3. HUMAN IMMUNOGLOBULIN; HYALURONIDASE [Suspect]
     Active Substance: HUMAN IMMUNOGLOBULIN G\HYALURONIDASE RECOMBINANT HUMAN
     Indication: PRIMARY IMMUNODEFICIENCY SYNDROME
     Dosage: UNK
     Route: 065
     Dates: start: 2016

REACTIONS (6)
  - Pneumonia [Unknown]
  - Nephrolithiasis [Unknown]
  - Infusion site swelling [Unknown]
  - Infusion site pruritus [Recovering/Resolving]
  - Dawn phenomenon [Unknown]
  - Infusion site warmth [Recovering/Resolving]

NARRATIVE: CASE EVENT DATE: 2016
